FAERS Safety Report 21990116 (Version 1)
Quarter: 2023Q1

REPORT INFORMATION
  Report Type: Spontaneous
  Country: FR (occurrence: FR)
  Receive Date: 20230214
  Receipt Date: 20230214
  Transmission Date: 20230418
  Serious: Yes (Other)
  Sender: FDA-Public Use
  Company Number: None

PATIENT
  Age: 75 Year
  Sex: Male
  Weight: 86 kg

DRUGS (13)
  1. RITUXIMAB [Suspect]
     Active Substance: RITUXIMAB
     Indication: Marginal zone lymphoma
     Dosage: 800 MG, OVER 4 HOURS
     Route: 042
     Dates: start: 20230112, end: 20230112
  2. ARANESP [Concomitant]
     Active Substance: DARBEPOETIN ALFA
     Dosage: 150 UG, WEEKLY IF HEMOGLOBIN BELOW12 G/DL
     Route: 058
  3. ONDANSETRON [Concomitant]
     Active Substance: ONDANSETRON
     Dosage: 1 ORODISPERSIBLE TABLET 2X/DAY IF NAUSEA FOR 3 DAYS
  4. VINCRISTINE [Concomitant]
     Active Substance: VINCRISTINE
     Dosage: UNK
  5. ELIQUIS [Concomitant]
     Active Substance: APIXABAN
     Dosage: 5 MG, 2X/DAY
  6. FILGRASTIM [Concomitant]
     Active Substance: FILGRASTIM
     Dosage: 48 MIU, 1X/DAY
     Route: 058
  7. TRANSIPEG [MACROGOL 3350;POTASSIUM CHLORIDE;SODIUM BICARBONATE;SODIUM [Concomitant]
     Dosage: 1 DF, DAILY
  8. PREDNISONE [Concomitant]
     Active Substance: PREDNISONE
     Dosage: 80 MG, 1X/DAY IN THE MORNING
  9. CYCLOPHOSPHAMIDE [Concomitant]
     Active Substance: CYCLOPHOSPHAMIDE
     Dosage: UNK
  10. VALACYCLOVIR HYDROCHLORIDE [Concomitant]
     Active Substance: VALACYCLOVIR HYDROCHLORIDE
     Dosage: 1 DF, 2X/DAY
  11. BACTRIM [Concomitant]
     Active Substance: SULFAMETHOXAZOLE\TRIMETHOPRIM
     Dosage: 1 TABLET ON  MONDAY WEDNESDAY FRIDAY
  12. NOVORAPID [Concomitant]
     Active Substance: INSULIN ASPART
     Dosage: UNK, AS NEEDED
  13. BICALAN [SODIUM BICARBONATE] [Concomitant]
     Dosage: MOUTHWASH FOUR TIMES DAILY

REACTIONS (5)
  - Dysmetria [Recovered/Resolved]
  - Nystagmus [Recovered/Resolved]
  - Vertigo [Recovered/Resolved]
  - Back pain [Recovered/Resolved]
  - Infusion related reaction [Recovered/Resolved]

NARRATIVE: CASE EVENT DATE: 20230112
